FAERS Safety Report 5797169-3 (Version None)
Quarter: 2008Q3

REPORT INFORMATION
  Report Type: 
  Country: None (occurrence: None)
  Receive Date: 20080701
  Receipt Date: 20080627
  Transmission Date: 20090109
  Serious: Yes (Death)
  Sender: FDA-Public Use
  Company Number: UG-ABBOTT-08P-165-0460050-00

PATIENT

DRUGS (7)
  1. KALETRA [Suspect]
     Indication: DRUG EXPOSURE DURING PREGNANCY
     Dosage: 400/100 MG
     Route: 048
     Dates: start: 20070503, end: 20080523
  2. CEFTRIAXONE [Concomitant]
     Indication: DRUG EXPOSURE DURING PREGNANCY
     Route: 042
     Dates: start: 20080329, end: 20080408
  3. QUININE [Concomitant]
     Indication: DRUG EXPOSURE DURING PREGNANCY
     Dates: start: 20080329, end: 20080408
  4. HERBAL COUGH SYRUP [Concomitant]
     Indication: DRUG EXPOSURE DURING PREGNANCY
     Dates: start: 20080329, end: 20080408
  5. ACETAMINOPHEN [Concomitant]
     Indication: DRUG EXPOSURE DURING PREGNANCY
     Dates: start: 20080329, end: 20080408
  6. EMTRICITABINE [Concomitant]
     Indication: DRUG EXPOSURE DURING PREGNANCY
     Route: 048
     Dates: start: 20071107, end: 20080522
  7. ZIDOVUDINE [Concomitant]
     Indication: DRUG EXPOSURE DURING PREGNANCY
     Route: 048
     Dates: start: 20071107, end: 20080523

REACTIONS (1)
  - DEATH NEONATAL [None]
